FAERS Safety Report 13686763 (Version 1)
Quarter: 2017Q2

REPORT INFORMATION
  Report Type: Spontaneous
  Country: IT (occurrence: IT)
  Receive Date: 20170623
  Receipt Date: 20170623
  Transmission Date: 20170830
  Serious: Yes (Other)
  Sender: FDA-Public Use
  Company Number: IT-MYLANLABS-2017M1037312

PATIENT

DRUGS (5)
  1. IFOSFAMIDE. [Suspect]
     Active Substance: IFOSFAMIDE
     Indication: NUT MIDLINE CARCINOMA
     Dosage: 2.5 G/M2 DAY 1-3; BIWEEKLY; 6 CYCLES
     Route: 065
  2. FILGRASTIM [Concomitant]
     Active Substance: FILGRASTIM
     Indication: PRODUCT USED FOR UNKNOWN INDICATION
     Route: 065
  3. CISPLATIN. [Suspect]
     Active Substance: CISPLATIN
     Indication: NUT MIDLINE CARCINOMA
     Dosage: DAY 2; BIWEEKLY; 6 CYCLES
     Route: 065
  4. PACLITAXEL. [Suspect]
     Active Substance: PACLITAXEL
     Indication: NUT MIDLINE CARCINOMA
     Dosage: DAY 1; BIWEEKLY; 6 CYCLES
     Route: 065
  5. MESNA. [Suspect]
     Active Substance: MESNA
     Indication: NUT MIDLINE CARCINOMA
     Dosage: BIWEEKLY; 6 CYCLES
     Route: 065

REACTIONS (1)
  - Haematotoxicity [Unknown]
